FAERS Safety Report 11629582 (Version 2)
Quarter: 2015Q4

REPORT INFORMATION
  Report Type: Report from Study
  Country: US (occurrence: US)
  Receive Date: 20151014
  Receipt Date: 20151209
  Transmission Date: 20160304
  Serious: Yes (Hospitalization)
  Sender: FDA-Public Use
  Company Number: US-TAKEDA-2015MPI006615

PATIENT
  Age: 80 Year
  Sex: Female
  Weight: 62.13 kg

DRUGS (2)
  1. DEXAMETHASONE. [Concomitant]
     Active Substance: DEXAMETHASONE
     Dosage: UNK
  2. VELCADE [Suspect]
     Active Substance: BORTEZOMIB
     Indication: PRODUCT USED FOR UNKNOWN INDICATION
     Dosage: 2 MG, 1/WEEK
     Route: 058
     Dates: start: 20150916

REACTIONS (3)
  - Chest injury [Unknown]
  - Rib fracture [Unknown]
  - Back pain [Unknown]

NARRATIVE: CASE EVENT DATE: 20150930
